FAERS Safety Report 12560501 (Version 1)
Quarter: 2016Q3

REPORT INFORMATION
  Report Type: Spontaneous
  Country: US (occurrence: None)
  Receive Date: 20160714
  Receipt Date: 20160714
  Transmission Date: 20161109
  Serious: No
  Sender: FDA-Public Use
  Company Number: None

PATIENT
  Sex: Male

DRUGS (1)
  1. PLAVIX  GENERIC [Suspect]
     Active Substance: CLOPIDOGREL BISULFATE

REACTIONS (2)
  - Product substitution issue [None]
  - Cerebrovascular accident [None]
